FAERS Safety Report 7052229-4 (Version None)
Quarter: 2010Q4

REPORT INFORMATION
  Report Type: 
  Country: None (occurrence: None)
  Receive Date: 20101019
  Receipt Date: 20101015
  Transmission Date: 20110411
  Serious: Yes (Life-Threatening)
  Sender: FDA-Public Use
  Company Number: DE-SANOFI-AVENTIS-2010SA062894

PATIENT
  Sex: Female

DRUGS (1)
  1. MULTAQ [Suspect]
     Indication: ATRIAL FIBRILLATION
     Route: 065

REACTIONS (3)
  - ARRHYTHMIA [None]
  - CARDIAC FAILURE [None]
  - CONDITION AGGRAVATED [None]
